FAERS Safety Report 5399919-7 (Version None)
Quarter: 2007Q3

REPORT INFORMATION
  Report Type: 
  Country: None (occurrence: None)
  Receive Date: 20070730
  Receipt Date: 20070724
  Transmission Date: 20080115
  Serious: Yes (Congenital Anomaly)
  Sender: FDA-Public Use
  Company Number: NLWYE037217JUL07

PATIENT
  Sex: Female
  Weight: 1.48 kg

DRUGS (4)
  1. EFFEXOR XR [Suspect]
     Indication: DEPRESSION
     Dates: start: 20060101
  2. HALDOL [Suspect]
     Indication: DEPRESSION
     Dosage: 1 MG WHENEVER NECESSARY
     Dates: start: 20060101
  3. IRON PREPARATIONS [Concomitant]
  4. ZYPREXA [Suspect]
     Indication: DEPRESSION
     Dates: start: 20060101

REACTIONS (4)
  - CHONDRODYSTROPHY [None]
  - DRUG EXPOSURE DURING PREGNANCY [None]
  - FOETAL GROWTH RETARDATION [None]
  - PREMATURE BABY [None]
